FAERS Safety Report 22150460 (Version 1)
Quarter: 2023Q1

REPORT INFORMATION
  Report Type: Spontaneous
  Country: US (occurrence: US)
  Receive Date: 20230329
  Receipt Date: 20230329
  Transmission Date: 20230417
  Serious: No
  Sender: FDA-Public Use
  Company Number: US-BRISTOL-MYERS SQUIBB COMPANY-2023-044636

PATIENT
  Age: 69 Year
  Sex: Female
  Weight: 144.24 kg

DRUGS (1)
  1. REVLIMID [Suspect]
     Active Substance: LENALIDOMIDE
     Indication: Plasma cell myeloma
     Dosage: FREQ: 1-5 OF 22DAYS
     Route: 048
     Dates: start: 20221201

REACTIONS (1)
  - Skin infection [Recovering/Resolving]
